FAERS Safety Report 23441630 (Version 1)
Quarter: 2024Q1

REPORT INFORMATION
  Report Type: Spontaneous
  Country: JP (occurrence: JP)
  Receive Date: 20240125
  Receipt Date: 20240125
  Transmission Date: 20240410
  Serious: Yes (Life-Threatening, Other)
  Sender: FDA-Public Use
  Company Number: JP-ORPHANEU-2024000415

PATIENT

DRUGS (12)
  1. COSMEGEN [Suspect]
     Active Substance: DACTINOMYCIN
     Indication: Choriocarcinoma
     Dosage: AT A DOSE OF 0.5 MG/BODY
  2. COSMEGEN [Suspect]
     Active Substance: DACTINOMYCIN
     Indication: Metastatic choriocarcinoma
  3. ETOPOSIDE [Concomitant]
     Active Substance: ETOPOSIDE
     Indication: Choriocarcinoma
     Dosage: 100 MG/M2
  4. ETOPOSIDE [Concomitant]
     Active Substance: ETOPOSIDE
     Indication: Metastatic choriocarcinoma
  5. METHOTREXATE [Concomitant]
     Active Substance: METHOTREXATE
     Indication: Metastatic choriocarcinoma
     Dosage: 300 MG/M2
  6. METHOTREXATE [Concomitant]
     Active Substance: METHOTREXATE
     Indication: Choriocarcinoma
     Dosage: 450 MG/BODY
  7. CISPLATIN [Concomitant]
     Active Substance: CISPLATIN
     Indication: Choriocarcinoma
     Dosage: DAILY DOSE: 75 MG/M2
  8. CISPLATIN [Concomitant]
     Active Substance: CISPLATIN
     Indication: Metastatic choriocarcinoma
  9. CYCLOPHOSPHAMIDE [Concomitant]
     Active Substance: CYCLOPHOSPHAMIDE
     Indication: Choriocarcinoma
     Dosage: DAILY DOSE OF 600 MG/M2
  10. CYCLOPHOSPHAMIDE [Concomitant]
     Active Substance: CYCLOPHOSPHAMIDE
     Indication: Metastatic choriocarcinoma
  11. VINCRISTINE SULFATE [Concomitant]
     Active Substance: VINCRISTINE SULFATE
     Indication: Choriocarcinoma
     Dosage: 1 MG/M2 DAILY
  12. VINCRISTINE SULFATE [Concomitant]
     Active Substance: VINCRISTINE SULFATE
     Indication: Metastatic choriocarcinoma

REACTIONS (4)
  - Disease recurrence [Not Recovered/Not Resolved]
  - Neuropathy peripheral [Unknown]
  - Stomatitis [Unknown]
  - Off label use [Recovered/Resolved]
